FAERS Safety Report 23283479 (Version 1)
Quarter: 2023Q4

REPORT INFORMATION
  Report Type: Spontaneous
  Country: AT (occurrence: AT)
  Receive Date: 20231211
  Receipt Date: 20231211
  Transmission Date: 20240109
  Serious: Yes (Hospitalization)
  Sender: FDA-Public Use
  Company Number: AT-DSJP-DSE-2023-148480

PATIENT
  Age: 60 Year
  Sex: Male
  Weight: 95 kg

DRUGS (3)
  1. TRASTUZUMAB DERUXTECAN [Suspect]
     Active Substance: TRASTUZUMAB DERUXTECAN
     Indication: Salivary gland cancer
     Dosage: 6.4 MG/KG, CYCLIC
     Route: 065
     Dates: start: 20231107
  2. TRASTUZUMAB DERUXTECAN [Suspect]
     Active Substance: TRASTUZUMAB DERUXTECAN
     Indication: HER2 positive salivary gland cancer
  3. TRASTUZUMAB DERUXTECAN [Suspect]
     Active Substance: TRASTUZUMAB DERUXTECAN
     Indication: Gastric cancer

REACTIONS (6)
  - Duodenitis [Unknown]
  - Gastritis [Unknown]
  - Pneumonitis [Recovering/Resolving]
  - Oesophageal achalasia [Recovering/Resolving]
  - Oesophageal injury [Unknown]
  - Radiation injury [Unknown]

NARRATIVE: CASE EVENT DATE: 20231101
